FAERS Safety Report 16116786 (Version 1)
Quarter: 2019Q1

REPORT INFORMATION
  Report Type: Spontaneous
  Country: GB (occurrence: GB)
  Receive Date: 20190326
  Receipt Date: 20190326
  Transmission Date: 20190418
  Serious: Yes (Disabling, Other)
  Sender: FDA-Public Use
  Company Number: GB-TEVA-2019-GB-1027474

PATIENT
  Age: 53 Year
  Sex: Female
  Weight: 141 kg

DRUGS (10)
  1. RAMIPRIL. [Concomitant]
     Active Substance: RAMIPRIL
     Dosage: 10 MILLIGRAM DAILY;
     Dates: start: 20181126
  2. INDAPAMIDE. [Suspect]
     Active Substance: INDAPAMIDE
     Indication: DIURETIC THERAPY
     Route: 048
  3. FLUCLOXACILLIN [Concomitant]
     Active Substance: FLUCLOXACILLIN
     Dosage: 2000 MILLIGRAM DAILY;
     Dates: start: 20190108
  4. LANSOPRAZOLE. [Concomitant]
     Active Substance: LANSOPRAZOLE
     Dosage: 15 MILLIGRAM DAILY; MORNING.
     Dates: start: 20181126
  5. NAPROXEN. [Concomitant]
     Active Substance: NAPROXEN
     Dosage: 500 MILLIGRAM DAILY;
     Dates: start: 20181218
  6. DIAZEPAM. [Concomitant]
     Active Substance: DIAZEPAM
     Dosage: 1 UP TO 4 TIMES A DAY.
     Dates: start: 20181212
  7. COCODAMOL [Concomitant]
     Active Substance: ACETAMINOPHEN\CODEINE PHOSPHATE
     Dosage: 30MG/500MG . 1-2 UP TO 4 TIMES DAILY.
     Dates: start: 20190108
  8. BISACODYL. [Concomitant]
     Active Substance: BISACODYL
     Dosage: 5 MILLIGRAM DAILY; BEFORE BEDTIME.
     Dates: start: 20181218
  9. MORPHGESIC [Concomitant]
     Active Substance: MORPHINE SULFATE
     Dosage: 60 MILLIGRAM DAILY;
     Dates: start: 20181218
  10. ORAMORPH [Concomitant]
     Active Substance: MORPHINE SULFATE
     Dosage: TAKE 2.5ML TO 5ML EVERY 2 TO 4 HOURS.?10MG PER 5ML
     Route: 048
     Dates: start: 20181204

REACTIONS (3)
  - Gouty arthritis [Recovered/Resolved]
  - Abscess limb [Unknown]
  - Cellulitis [Unknown]

NARRATIVE: CASE EVENT DATE: 20190108
